FAERS Safety Report 5394732-9 (Version None)
Quarter: 2007Q3

REPORT INFORMATION
  Report Type: 
  Country: None (occurrence: None)
  Receive Date: 20070723
  Receipt Date: 20070711
  Transmission Date: 20080115
  Serious: Yes (Hospitalization, Other)
  Sender: FDA-Public Use
  Company Number: FR-PFIZER INC-2007049912

PATIENT
  Sex: Male

DRUGS (13)
  1. LYRICA [Suspect]
     Indication: POST HERPETIC NEURALGIA
     Dosage: DAILY DOSE:50MG
     Route: 048
     Dates: start: 20070402, end: 20070406
  2. LYRICA [Interacting]
     Indication: NEURALGIA
  3. ZELITREX [Interacting]
     Indication: NEURALGIA
     Dosage: DAILY DOSE:500MG
     Route: 048
     Dates: start: 20070402, end: 20070406
  4. LAMALINE [Interacting]
     Indication: NEURALGIA
     Route: 048
     Dates: start: 20070402, end: 20070406
  5. ISOBAR [Concomitant]
     Indication: HYPERTENSION
     Route: 048
  6. SERETIDE [Concomitant]
     Indication: RESPIRATORY FAILURE
     Route: 048
  7. EUPANTOL [Concomitant]
     Indication: GASTRITIS
     Route: 048
  8. EUPANTOL [Concomitant]
     Indication: GASTROOESOPHAGEAL REFLUX DISEASE
  9. DOMPERIDONE [Concomitant]
     Indication: GASTROOESOPHAGEAL REFLUX DISEASE
     Route: 048
  10. ALPRAZOLAM [Concomitant]
     Indication: ANXIETY
     Route: 048
  11. POTASSIUM CHLORIDE [Concomitant]
     Route: 048
  12. HEXAQUINE [Concomitant]
     Route: 048
  13. VEINAMITOL [Concomitant]
     Route: 048

REACTIONS (3)
  - DRUG INTERACTION [None]
  - PROSTATIC SPECIFIC ANTIGEN ABNORMAL [None]
  - URINARY RETENTION [None]
